FAERS Safety Report 6291037-9 (Version None)
Quarter: 2009Q3

REPORT INFORMATION
  Report Type: 
  Country: None (occurrence: None)
  Receive Date: 20090730
  Receipt Date: 20090429
  Transmission Date: 20100115
  Serious: Yes (Death, Life-Threatening)
  Sender: FDA-Public Use
  Company Number: US-ROCHE-588979

PATIENT
  Age: 12 Year
  Sex: Female
  Weight: 14.8 kg

DRUGS (16)
  1. OSELTAMIVIR [Suspect]
     Indication: INFLUENZA
     Dosage: DOSAGE: THE PATIENT RECEIVED TAMIFLU (75 MG) 1/2 TAB BID AT 10 AM OF 27 SEP 2008
     Route: 048
     Dates: start: 20080927
  2. OSELTAMIVIR [Suspect]
     Dosage: LAST DOSE ADMINISTERED ON 07 OCT 2008
     Route: 048
     Dates: end: 20081007
  3. BLINDED OSELTAMIVIR [Suspect]
     Indication: INFLUENZA
     Route: 048
     Dates: start: 20080927, end: 20081007
  4. BLINDED OSELTAMIVIR [Suspect]
     Dosage: LAST DOSE ADMINISTERED ON 07 OCT 2008
     Route: 048
     Dates: end: 20081007
  5. PHENOBARB [Concomitant]
     Indication: CEREBRAL PALSY
     Route: 042
     Dates: start: 20080928
  6. PRILOSEC [Concomitant]
     Indication: UPPER GASTROINTESTINAL HAEMORRHAGE
     Route: 042
     Dates: start: 20080928
  7. ACETAMINOPHEN [Concomitant]
     Route: 048
     Dates: start: 20080928, end: 20080929
  8. DORMICUM [Concomitant]
     Indication: SEDATION
     Route: 042
     Dates: start: 20080928
  9. CHLORAL HYDRATE [Concomitant]
     Indication: SEDATION
     Route: 048
     Dates: start: 20080928
  10. SODIUM CHLORIDE [Concomitant]
     Indication: HYPOVOLAEMIC SHOCK
     Route: 042
     Dates: start: 20080928, end: 20080928
  11. DEXTROSE [Concomitant]
     Route: 042
     Dates: start: 20080928
  12. CALCIUM GLUCONATE INJ [Concomitant]
     Route: 042
     Dates: start: 20080922, end: 20080922
  13. CALCIUM GLUCONATE INJ [Concomitant]
     Route: 042
     Dates: start: 20080923, end: 20080923
  14. CALCIUM GLUCONATE INJ [Concomitant]
     Route: 042
     Dates: start: 20080925, end: 20080926
  15. CALCIUM GLUCONATE INJ [Concomitant]
     Route: 042
     Dates: start: 20080927, end: 20080928
  16. CALCIUM GLUCONATE INJ [Concomitant]
     Route: 042
     Dates: start: 20080928, end: 20080929

REACTIONS (5)
  - ACUTE RESPIRATORY DISTRESS SYNDROME [None]
  - CARDIO-RESPIRATORY ARREST [None]
  - PNEUMOTHORAX [None]
  - SEPTIC SHOCK [None]
  - VENTRICULAR TACHYCARDIA [None]
